FAERS Safety Report 5380858-2 (Version None)
Quarter: 2007Q3

REPORT INFORMATION
  Report Type: 
  Country: None (occurrence: None)
  Receive Date: 20070706
  Receipt Date: 20070628
  Transmission Date: 20080115
  Serious: Yes (Death)
  Sender: FDA-Public Use
  Company Number: KR-JNJFOC-20070700111

PATIENT
  Age: 55 Year
  Sex: Male

DRUGS (1)
  1. DURAGESIC-100 [Suspect]
     Indication: CANCER PAIN
     Dosage: 500~1000 UG/HR
     Route: 062

REACTIONS (2)
  - COMPLETED SUICIDE [None]
  - DRUG TOLERANCE INCREASED [None]
